FAERS Safety Report 18445541 (Version 1)
Quarter: 2020Q4

REPORT INFORMATION
  Report Type: Spontaneous
  Country: FR (occurrence: FR)
  Receive Date: 20201030
  Receipt Date: 20201030
  Transmission Date: 20210114
  Serious: Yes (Hospitalization)
  Sender: FDA-Public Use
  Company Number: FR-JNJFOC-20201034169

PATIENT
  Age: 62 Year
  Sex: Male

DRUGS (2)
  1. ERLEADA [Suspect]
     Active Substance: APALUTAMIDE
     Indication: NEOPLASM MALIGNANT
     Route: 048
  2. FLUDESOXYGLUCOSE (18F) [Concomitant]
     Indication: POSITRON EMISSION TOMOGRAM
     Route: 042
     Dates: start: 201607, end: 201607

REACTIONS (2)
  - Uveitis [Recovered/Resolved]
  - Uveitis [Recovering/Resolving]

NARRATIVE: CASE EVENT DATE: 202002
